FAERS Safety Report 10908281 (Version 2)
Quarter: 2015Q2

REPORT INFORMATION
  Report Type: Spontaneous
  Country: BE (occurrence: None)
  Receive Date: 20150309
  Receipt Date: 20150402
  Transmission Date: 20150821
  Serious: No
  Sender: FDA-Public Use
  Company Number: 2015BE001961

PATIENT
  Sex: Male

DRUGS (1)
  1. ELIGARD [Suspect]
     Active Substance: LEUPROLIDE ACETATE
     Indication: PROSTATE CANCER
     Dosage: 45 MG, EVERY SIX MONTHS, SUBCUTANEOUS
     Route: 058
     Dates: start: 20150223

REACTIONS (5)
  - Injection site haemorrhage [None]
  - Wrong technique in drug usage process [None]
  - Feeling drunk [None]
  - Malaise [None]
  - Medication error [None]

NARRATIVE: CASE EVENT DATE: 20150223
